FAERS Safety Report 7898470-X (Version None)
Quarter: 2011Q4

REPORT INFORMATION
  Report Type: 
  Country: None (occurrence: None)
  Receive Date: 20111103
  Receipt Date: 20111025
  Transmission Date: 20120403
  Serious: Yes (Other)
  Sender: FDA-Public Use
  Company Number: 2011P1009679

PATIENT
  Age: 10 Year
  Sex: Female

DRUGS (3)
  1. STEROID [Concomitant]
  2. ALBENDAZOLE (NO PREF. NAME) [Suspect]
     Indication: SYDENHAM'S CHOREA
  3. HALOPERIDOL [Concomitant]

REACTIONS (4)
  - HYPERTENSION [None]
  - BRADYCARDIA [None]
  - INTRACRANIAL PRESSURE INCREASED [None]
  - HYPERTONIA [None]
